FAERS Safety Report 9905499 (Version 1)
Quarter: 2013Q2

REPORT INFORMATION
  Report Type: Spontaneous
  Country: US (occurrence: None)
  Receive Date: 20130305
  Receipt Date: 20130305
  Transmission Date: 20140414
  Serious: Yes (Other)
  Sender: FDA-Public Use
  Company Number: 163-21880-12041643

PATIENT
  Age: 48 Year
  Sex: Female

DRUGS (2)
  1. REVLIMID (LENALIDOMIDE) (10 MILLIGRAM, CAPSULES) [Suspect]
     Indication: PLASMA CELL MYELOMA
     Dosage: 10 MG, DAILY X 21 DAYS THEN 7 DAYS OFF, PO
     Route: 048
     Dates: start: 20110322, end: 20110804
  2. VELCADE (BORTEZOMIB) [Concomitant]

REACTIONS (1)
  - Disease recurrence [None]
